FAERS Safety Report 25284595 (Version 2)
Quarter: 2025Q2

REPORT INFORMATION
  Report Type: Spontaneous
  Country: FR (occurrence: FR)
  Receive Date: 20250508
  Receipt Date: 20250523
  Transmission Date: 20250717
  Serious: Yes (Death, Hospitalization, Other)
  Sender: SANOFI AVENTIS
  Company Number: FR-SANOFI-02477783

PATIENT
  Age: 94 Year
  Sex: Male

DRUGS (8)
  1. ISONIAZID\RIFAMPIN [Suspect]
     Active Substance: ISONIAZID\RIFAMPIN
     Indication: Tuberculosis
     Dosage: 6 DF, QD
     Route: 048
     Dates: start: 20250227, end: 2025
  2. HERBALS\SAW PALMETTO [Concomitant]
     Active Substance: HERBALS\SAW PALMETTO
  3. LERCANIDIPINE [Concomitant]
     Active Substance: LERCANIDIPINE
  4. ELIQUIS [Concomitant]
     Active Substance: APIXABAN
  5. DAPAGLIFLOZIN [Concomitant]
     Active Substance: DAPAGLIFLOZIN
  6. FUROSEMIDE [Concomitant]
     Active Substance: FUROSEMIDE
  7. BISOPROLOL [Concomitant]
     Active Substance: BISOPROLOL
  8. PANTOPRAZOLE [Concomitant]
     Active Substance: PANTOPRAZOLE

REACTIONS (9)
  - Tuberculosis [Fatal]
  - Lower respiratory tract congestion [Fatal]
  - Respiratory disorder [Fatal]
  - Lung disorder [Fatal]
  - Wrong product administered [Unknown]
  - Overdose [Unknown]
  - Product dispensing error [Unknown]
  - Product packaging confusion [Unknown]
  - Fall [Unknown]

NARRATIVE: CASE EVENT DATE: 20250101
